FAERS Safety Report 24685701 (Version 3)
Quarter: 2025Q1

REPORT INFORMATION
  Report Type: Spontaneous
  Country: US (occurrence: US)
  Receive Date: 20241202
  Receipt Date: 20250324
  Transmission Date: 20250408
  Serious: Yes (Other)
  Sender: JOHNSON AND JOHNSON
  Company Number: US-JNJFOC-20241172756

PATIENT
  Age: 60 Year
  Sex: Male

DRUGS (1)
  1. CARVYKTI [Suspect]
     Active Substance: CILTACABTAGENE AUTOLEUCEL
     Indication: Product used for unknown indication
     Route: 065

REACTIONS (5)
  - Facial paralysis [Unknown]
  - Cytokine release syndrome [Unknown]
  - Tonsillitis [Unknown]
  - Headache [Unknown]
  - Lymphocyte count decreased [Unknown]
